FAERS Safety Report 6922813-4 (Version None)
Quarter: 2010Q3

REPORT INFORMATION
  Report Type: 
  Country: None (occurrence: None)
  Receive Date: 20100813
  Receipt Date: 20100803
  Transmission Date: 20110219
  Serious: Yes (Hospitalization)
  Sender: FDA-Public Use
  Company Number: KR-PFIZER INC-2010089956

PATIENT
  Age: 50 Year
  Sex: Male
  Weight: 70.6 kg

DRUGS (13)
  1. SUNITINIB MALATE [Suspect]
     Indication: METASTATIC GASTRIC CANCER
     Dosage: 37.5 MG, 1X/DAY, 2 WEEKS ON 1 WEEK OFF
     Route: 048
     Dates: start: 20100708, end: 20100716
  2. CAPECITABINE [Suspect]
     Indication: METASTATIC GASTRIC CANCER
     Dosage: 1500 MG, 2X/DAY, FROM DAY 1 TO DAY 14 OF CYCLE
     Route: 048
     Dates: start: 20100707, end: 20100716
  3. OXALIPLATIN [Suspect]
     Indication: METASTATIC GASTRIC CANCER
     Dosage: 207 MG, EVERY 3 WEEKS
     Route: 042
     Dates: start: 20100708, end: 20100708
  4. FAMOTIDINE [Concomitant]
     Indication: GASTRODUODENAL ULCER
     Dosage: 20 MG, 2X/DAY
     Route: 048
     Dates: start: 20100706, end: 20100708
  5. GRANISETRON [Concomitant]
     Indication: ANTIEMETIC SUPPORTIVE CARE
     Dosage: 1 MG, 2X/DAY
     Route: 048
     Dates: start: 20100707
  6. GRANISETRON [Concomitant]
     Dosage: 3 MG, 1X/DAY
     Route: 042
     Dates: start: 20100708
  7. LANSOPRAZOLE [Concomitant]
     Indication: GASTRODUODENAL ULCER
     Dosage: 30 MG, 1X/DAY
     Route: 048
     Dates: start: 20100702, end: 20100705
  8. METOCLOPRAMIDE [Concomitant]
     Indication: ANTIEMETIC SUPPORTIVE CARE
     Dosage: 10 MG, 3X/DAY
     Route: 048
     Dates: start: 20100707
  9. CHLORPHENIRAMINE MALEATE [Concomitant]
     Indication: ANTIALLERGIC THERAPY
     Dosage: 4 MG, 1X/DAY
     Route: 042
     Dates: start: 20100708
  10. DEXAMETHASONE [Concomitant]
     Indication: ADRENOCORTICAL STEROID THERAPY
     Dosage: 10 MG, 1X/DAY
     Route: 042
     Dates: start: 20100708
  11. DEXTROSE [Concomitant]
     Indication: ADMINISTRATION RELATED REACTION
     Dosage: 500 ML, 1X/DAY
     Route: 042
     Dates: start: 20100708
  12. DEXTROSE [Concomitant]
     Dosage: 50 ML, 1X/DAY
     Route: 042
     Dates: start: 20100708
  13. NORMAL SALINE [Concomitant]
     Indication: ADMINISTRATION RELATED REACTION
     Dosage: 1000 ML, 1X/DAY
     Route: 042
     Dates: start: 20100705, end: 20100705

REACTIONS (2)
  - GASTRIC PERFORATION [None]
  - PERITONITIS [None]
